FAERS Safety Report 6415371-4 (Version None)
Quarter: 2009Q4

REPORT INFORMATION
  Report Type: 
  Country: None (occurrence: None)
  Receive Date: 20091026
  Receipt Date: 20091026
  Transmission Date: 20100525
  Serious: Yes (Hospitalization)
  Sender: FDA-Public Use
  Company Number: None

PATIENT
  Sex: Female
  Weight: 103 kg

DRUGS (5)
  1. DAUNORUBICIN HCL [Suspect]
     Dosage: 150 MG
  2. PEG-L-ASPARAGINASE (K-H) [Suspect]
     Dosage: 5250 IU
  3. VINCRISTINE SULFATE [Suspect]
     Dosage: 6 MG
  4. CYTARABINE [Suspect]
     Dosage: 70 MG
  5. METHYLPREDNISOLONE 4MG TAB [Suspect]
     Dosage: 3360 MG

REACTIONS (2)
  - HYPERBILIRUBINAEMIA [None]
  - JAUNDICE [None]
